FAERS Safety Report 8063825-X (Version None)
Quarter: 2012Q1

REPORT INFORMATION
  Report Type: 
  Country: None (occurrence: None)
  Receive Date: 20120123
  Receipt Date: 20120117
  Transmission Date: 20120608
  Serious: Yes (Hospitalization)
  Sender: FDA-Public Use
  Company Number: CZ-MERCK-1201USA00992

PATIENT
  Age: 17 Year
  Sex: Female
  Weight: 74 kg

DRUGS (2)
  1. SINGULAIR [Suspect]
     Indication: HYPERSENSITIVITY
     Route: 048
     Dates: start: 20110920, end: 20111211
  2. SINGULAIR [Suspect]
     Indication: DYSPNOEA
     Route: 048
     Dates: start: 20110920, end: 20111211

REACTIONS (1)
  - CSF PRESSURE INCREASED [None]
